FAERS Safety Report 25100408 (Version 3)
Quarter: 2025Q1

REPORT INFORMATION
  Report Type: Spontaneous
  Country: US (occurrence: US)
  Receive Date: 20250320
  Receipt Date: 20250324
  Transmission Date: 20250409
  Serious: No
  Sender: PFIZER
  Company Number: US-PFIZER INC-PV202500033380

PATIENT
  Sex: Female

DRUGS (6)
  1. GLIPIZIDE [Suspect]
     Active Substance: GLIPIZIDE
  2. JANUVIA [Suspect]
     Active Substance: SITAGLIPTIN PHOSPHATE
  3. PANZYGA [Suspect]
     Active Substance: HUMAN IMMUNOGLOBULIN G
  4. METFORMIN [Suspect]
     Active Substance: METFORMIN HYDROCHLORIDE
  5. ERTUGLIFLOZIN [Suspect]
     Active Substance: ERTUGLIFLOZIN
  6. SITAGLIPTIN [Suspect]
     Active Substance: SITAGLIPTIN

REACTIONS (1)
  - Drug ineffective [Unknown]
